FAERS Safety Report 11223989 (Version 3)
Quarter: 2015Q3

REPORT INFORMATION
  Report Type: Report from Study
  Country: AU (occurrence: AU)
  Receive Date: 20150629
  Receipt Date: 20150720
  Transmission Date: 20151125
  Serious: Yes (Hospitalization, Other)
  Sender: FDA-Public Use
  Company Number: PHHY2015AU077440

PATIENT
  Sex: Male

DRUGS (2)
  1. CLOZARIL [Suspect]
     Active Substance: CLOZAPINE
     Indication: SCHIZOPHRENIA
     Dosage: 350 OT
     Route: 048
     Dates: start: 19930927
  2. CLOZARIL [Suspect]
     Active Substance: CLOZAPINE
     Dosage: 25 MG, UNK
     Route: 048
     Dates: end: 20150710

REACTIONS (5)
  - Hepatitis C [Unknown]
  - Jaundice [Unknown]
  - Hepatic failure [Unknown]
  - Antipsychotic drug level above therapeutic [Unknown]
  - Abdominal distension [Unknown]
